FAERS Safety Report 13929886 (Version 1)
Quarter: 2017Q3

REPORT INFORMATION
  Report Type: Spontaneous
  Country: FR (occurrence: FR)
  Receive Date: 20170901
  Receipt Date: 20170901
  Transmission Date: 20171127
  Serious: Yes (Disabling)
  Sender: FDA-Public Use
  Company Number: FR-ROCHE-1986953

PATIENT
  Age: 67 Year
  Sex: Female

DRUGS (16)
  1. PLAVIX [Concomitant]
     Active Substance: CLOPIDOGREL BISULFATE
  2. SINTROM [Concomitant]
     Active Substance: ACENOCOUMAROL
  3. RENAGEL [Concomitant]
     Active Substance: SEVELAMER HYDROCHLORIDE
  4. EUPRESSYL [Concomitant]
     Active Substance: URAPIDIL
  5. ROCEPHINE [Suspect]
     Active Substance: CEFTRIAXONE SODIUM
     Indication: BACTERAEMIA
     Route: 042
     Dates: start: 20170707, end: 20170707
  6. GENTAMICINE PANPHARMA [Suspect]
     Active Substance: GENTAMICIN
     Indication: BACTERAEMIA
     Route: 042
     Dates: start: 20170707, end: 20170710
  7. GENTAMICINE PANPHARMA [Suspect]
     Active Substance: GENTAMICIN
     Route: 042
     Dates: start: 20170711, end: 20170712
  8. ORBENINE [Suspect]
     Active Substance: CLOXACILLIN SODIUM
     Indication: BACTERAEMIA
     Route: 042
     Dates: start: 20170707, end: 20170707
  9. ORBENINE [Suspect]
     Active Substance: CLOXACILLIN SODIUM
     Route: 042
     Dates: start: 20170708, end: 20170715
  10. EXFORGE [Concomitant]
     Active Substance: AMLODIPINE BESYLATE\VALSARTAN
  11. CLARITYNE [Concomitant]
     Active Substance: LORATADINE
  12. LEXOMIL [Concomitant]
     Active Substance: BROMAZEPAM
  13. LOXEN (FRANCE) [Concomitant]
     Active Substance: NICARDIPINE HYDROCHLORIDE
  14. MOPRAL [Concomitant]
     Active Substance: OMEPRAZOLE SODIUM
  15. TANGANIL [Concomitant]
     Active Substance: ACETYLLEUCINE
  16. DOLIPRANE [Concomitant]
     Active Substance: ACETAMINOPHEN

REACTIONS (2)
  - Vertigo [Not Recovered/Not Resolved]
  - Tinnitus [Not Recovered/Not Resolved]

NARRATIVE: CASE EVENT DATE: 20170715
